FAERS Safety Report 12373288 (Version 1)
Quarter: 2016Q2

REPORT INFORMATION
  Report Type: Spontaneous
  Country: GB (occurrence: GB)
  Receive Date: 20160516
  Receipt Date: 20160516
  Transmission Date: 20160815
  Serious: Yes (Hospitalization)
  Sender: FDA-Public Use
  Company Number: GB-JNJFOC-20160506369

PATIENT
  Age: 12 Year
  Sex: Female
  Weight: 40 kg

DRUGS (2)
  1. AZATHIOPRINE. [Concomitant]
     Active Substance: AZATHIOPRINE
     Route: 065
  2. INFLIXIMAB, RECOMBINANT [Suspect]
     Active Substance: INFLIXIMAB
     Indication: CROHN^S DISEASE
     Route: 042
     Dates: start: 20160414, end: 20160414

REACTIONS (3)
  - Joint effusion [Recovering/Resolving]
  - Arthralgia [Recovering/Resolving]
  - Arthritis reactive [Recovering/Resolving]

NARRATIVE: CASE EVENT DATE: 20160416
